FAERS Safety Report 17018144 (Version 9)
Quarter: 2023Q2

REPORT INFORMATION
  Report Type: Report from Study
  Country: BR (occurrence: BR)
  Receive Date: 20191111
  Receipt Date: 20230519
  Transmission Date: 20230722
  Serious: Yes (Hospitalization, Other)
  Sender: FDA-Public Use
  Company Number: BR-BIOGENIDEC-2010BI002888

PATIENT
  Sex: Female
  Weight: 50 kg

DRUGS (26)
  1. AVONEX [Suspect]
     Active Substance: INTERFERON BETA-1A
     Indication: Multiple sclerosis
     Route: 050
     Dates: start: 200205, end: 2005
  2. AVONEX [Suspect]
     Active Substance: INTERFERON BETA-1A
     Route: 050
     Dates: start: 2005, end: 2011
  3. AVONEX [Suspect]
     Active Substance: INTERFERON BETA-1A
  4. AVONEX [Suspect]
     Active Substance: INTERFERON BETA-1A
  5. AVONEX PEN [Suspect]
     Active Substance: INTERFERON BETA-1A
     Indication: Multiple sclerosis
     Route: 050
     Dates: start: 2002, end: 201210
  6. AVONEX PEN [Suspect]
     Active Substance: INTERFERON BETA-1A
     Route: 050
     Dates: start: 201210
  7. AVONEX PEN [Suspect]
     Active Substance: INTERFERON BETA-1A
     Route: 050
     Dates: start: 20121105, end: 201604
  8. AVONEX PEN [Suspect]
     Active Substance: INTERFERON BETA-1A
     Route: 050
     Dates: start: 20181001
  9. AVONEX PEN [Suspect]
     Active Substance: INTERFERON BETA-1A
     Route: 050
     Dates: start: 20181001
  10. AVONEX PEN [Suspect]
     Active Substance: INTERFERON BETA-1A
     Route: 050
     Dates: start: 2012, end: 2017
  11. AVONEX PEN [Suspect]
     Active Substance: INTERFERON BETA-1A
     Route: 050
     Dates: start: 201810
  12. AVONEX PEN [Suspect]
     Active Substance: INTERFERON BETA-1A
     Route: 050
     Dates: start: 2005, end: 2016
  13. AVONEX PEN [Suspect]
     Active Substance: INTERFERON BETA-1A
     Route: 050
     Dates: start: 20181001
  14. ALPRAZOLAM [Concomitant]
     Active Substance: ALPRAZOLAM
     Indication: Insomnia
     Route: 050
  15. hyperic dry extract [Concomitant]
     Indication: Irritable bowel syndrome
     Route: 050
  16. hyperic dry extract [Concomitant]
     Route: 050
     Dates: start: 2019
  17. hyperic dry extract [Concomitant]
     Route: 050
  18. RANITIDINE [Concomitant]
     Active Substance: RANITIDINE
     Indication: Gastric disorder
     Route: 050
     Dates: start: 2001
  19. RANITIDINE [Concomitant]
     Active Substance: RANITIDINE
     Route: 050
  20. SIMVASTATIN [Concomitant]
     Active Substance: SIMVASTATIN
     Indication: Inflammation
     Route: 050
  21. SIMVASTATIN [Concomitant]
     Active Substance: SIMVASTATIN
     Route: 050
     Dates: start: 2018
  22. Lonium (Otilonium Bromide) [Concomitant]
     Indication: Irritable bowel syndrome
     Route: 050
  23. Lonium (Otilonium Bromide) [Concomitant]
     Route: 050
     Dates: start: 2006, end: 2018
  24. MAGNESIUM ASPARTATE [Concomitant]
     Active Substance: MAGNESIUM ASPARTATE
     Indication: Product used for unknown indication
     Route: 050
  25. OMEPRAZOLE [Concomitant]
     Active Substance: OMEPRAZOLE
     Indication: Pain prophylaxis
     Route: 050
  26. OMEPRAZOLE [Concomitant]
     Active Substance: OMEPRAZOLE
     Route: 050

REACTIONS (17)
  - Febrile convulsion [Recovered/Resolved]
  - Ovarian fibroma [Unknown]
  - Hemiplegia [Recovered/Resolved]
  - Pyrexia [Recovered/Resolved]
  - Urinary incontinence [Recovered/Resolved]
  - Retching [Recovered/Resolved]
  - Gait inability [Unknown]
  - Haemorrhage [Unknown]
  - Osteopenia [Unknown]
  - Multiple sclerosis relapse [Recovered/Resolved]
  - Headache [Recovered/Resolved]
  - Chills [Recovered/Resolved]
  - Fatigue [Recovered/Resolved]
  - Pain [Recovered/Resolved]
  - Injection site pain [Not Recovered/Not Resolved]
  - Nausea [Not Recovered/Not Resolved]
  - Hyperhidrosis [Recovered/Resolved]

NARRATIVE: CASE EVENT DATE: 20050101
